FAERS Safety Report 7778329-9 (Version None)
Quarter: 2011Q3

REPORT INFORMATION
  Report Type: 
  Country: None (occurrence: None)
  Receive Date: 20110926
  Receipt Date: 20110913
  Transmission Date: 20111222
  Serious: Yes (Hospitalization, Other)
  Sender: FDA-Public Use
  Company Number: US-BAYER-2010-001656

PATIENT
  Age: 15 Year
  Sex: Female
  Weight: 82 kg

DRUGS (4)
  1. SPRINTEC [Concomitant]
  2. DEPO-PROVERA [Concomitant]
  3. YASMIN [Suspect]
     Dosage: UNK
     Dates: start: 20070801
  4. YASMIN [Suspect]
     Dosage: UNK
     Dates: start: 20071001, end: 20091001

REACTIONS (6)
  - INJURY [None]
  - THROMBOSIS [None]
  - PULMONARY EMBOLISM [None]
  - CHEST PAIN [None]
  - DYSPNOEA [None]
  - PAIN [None]
